FAERS Safety Report 7527506-0 (Version None)
Quarter: 2011Q2

REPORT INFORMATION
  Report Type: 
  Country: None (occurrence: None)
  Receive Date: 20110607
  Receipt Date: 20110126
  Transmission Date: 20111010
  Serious: Yes (Other)
  Sender: FDA-Public Use
  Company Number: US-BAYER-201037971NA

PATIENT
  Age: 19 Year
  Sex: Female
  Weight: 47.619 kg

DRUGS (10)
  1. DROSPIRENONE AND ETHINYL ESTRADIOL [Suspect]
     Indication: ABDOMINAL PAIN
     Dosage: UNK UNK, QD
     Dates: start: 20010101
  2. LEXAPRO [Concomitant]
     Dosage: 100 MG, UNK
  3. YAZ [Suspect]
     Indication: ABDOMINAL PAIN
     Dosage: UNK UNK, QD
  4. YASMIN [Suspect]
     Indication: MENSTRUATION IRREGULAR
  5. EMERGEN-C [Concomitant]
     Dosage: UNK UNK, PRN
  6. VALTREX [Concomitant]
     Indication: ORAL HERPES
     Dosage: UNK
     Dates: start: 20030101
  7. DROSPIRENONE AND ETHINYL ESTRADIOL [Suspect]
     Indication: MENSTRUATION IRREGULAR
  8. ADVIL LIQUI-GELS [Concomitant]
     Dosage: UNK UNK, PRN
  9. YAZ [Suspect]
     Indication: MENSTRUATION IRREGULAR
  10. YASMIN [Suspect]
     Indication: ABDOMINAL PAIN
     Dosage: UNK UNK, QD
     Dates: start: 20010101

REACTIONS (3)
  - CHOLECYSTITIS CHRONIC [None]
  - CHOLELITHIASIS [None]
  - ABDOMINAL PAIN UPPER [None]
